FAERS Safety Report 10677580 (Version 1)
Quarter: 2014Q4

REPORT INFORMATION
  Report Type: Spontaneous
  Country: US (occurrence: US)
  Receive Date: 20141228
  Receipt Date: 20141228
  Transmission Date: 20150529
  Serious: No
  Sender: FDA-Public Use
  Company Number: US-BAUSCH-SYM-2014-17536

PATIENT
  Age: 46 Year
  Sex: Male

DRUGS (1)
  1. XENAZINE [Suspect]
     Active Substance: TETRABENAZINE
     Indication: CHOREA
     Dosage: 1 TABLET, 3 TIMES DAILY
     Route: 048
     Dates: start: 201310

REACTIONS (1)
  - Impulse-control disorder [Unknown]

NARRATIVE: CASE EVENT DATE: 201312
